FAERS Safety Report 17673424 (Version 1)
Quarter: 2020Q2

REPORT INFORMATION
  Report Type: Spontaneous
  Country: FR (occurrence: FR)
  Receive Date: 20200416
  Receipt Date: 20200416
  Transmission Date: 20200713
  Serious: Yes (Hospitalization)
  Sender: FDA-Public Use
  Company Number: FR-ACCORD-178688

PATIENT
  Age: 64 Year
  Sex: Male
  Weight: 83 kg

DRUGS (20)
  1. UROREC [Concomitant]
     Active Substance: SILODOSIN
  2. METHOTREXATE MYLAN [Suspect]
     Active Substance: METHOTREXATE SODIUM
     Indication: LEUKAEMIA
     Route: 042
     Dates: start: 20200113, end: 20200113
  3. CYTARABINE/CYTARABINE HYDROCHLORIDE/CYTARABINE OCFOSFATE [Suspect]
     Active Substance: CYTARABINE
     Indication: LEUKAEMIA
     Route: 037
     Dates: start: 20200113, end: 20200113
  4. DEPO-MEDROL [Suspect]
     Active Substance: METHYLPREDNISOLONE ACETATE
     Indication: PRODUCT USED FOR UNKNOWN INDICATION
     Route: 042
     Dates: start: 20191219, end: 20191219
  5. ZAVEDOS [Suspect]
     Active Substance: IDARUBICIN
     Indication: LEUKAEMIA
     Route: 042
     Dates: start: 20200113, end: 20200113
  6. ACTISKENAN [Concomitant]
     Active Substance: MORPHINE SULFATE
  7. METHOTREXATE BIODIM [Suspect]
     Active Substance: METHOTREXATE
     Indication: LEUKAEMIA
     Route: 037
     Dates: start: 20200113, end: 20200113
  8. ONDANSETRON ACCORD [Suspect]
     Active Substance: ONDANSETRON
     Indication: PROPHYLAXIS OF NAUSEA AND VOMITING
     Dosage: 2 MG/ML, SOLUTION INJECTABLE
     Route: 042
     Dates: start: 20200113, end: 20200113
  9. METHOTREXATE BIODIM [Suspect]
     Active Substance: METHOTREXATE
     Indication: PRODUCT USED FOR UNKNOWN INDICATION
     Route: 042
     Dates: start: 20191219, end: 20191219
  10. METHOTREXATE MYLAN [Suspect]
     Active Substance: METHOTREXATE SODIUM
     Indication: PRODUCT USED FOR UNKNOWN INDICATION
     Route: 042
     Dates: start: 20191219, end: 20191219
  11. SKENAN [Concomitant]
     Active Substance: MORPHINE SULFATE
  12. PARACETAMOL [Concomitant]
     Active Substance: ACETAMINOPHEN
  13. THEOSTAT [Concomitant]
     Active Substance: THEOPHYLLINE ANHYDROUS
  14. DEPO-MEDROL [Suspect]
     Active Substance: METHYLPREDNISOLONE ACETATE
     Indication: LEUKAEMIA
     Route: 037
     Dates: start: 20200113, end: 20200113
  15. NISIS [Concomitant]
     Active Substance: VALSARTAN
  16. FORADIL [Concomitant]
     Active Substance: FORMOTEROL FUMARATE
  17. CYTARABINE/CYTARABINE HYDROCHLORIDE/CYTARABINE OCFOSFATE [Suspect]
     Active Substance: CYTARABINE
     Indication: PRODUCT USED FOR UNKNOWN INDICATION
     Route: 042
     Dates: start: 20191219, end: 20191219
  18. ONDANSETRON ACCORD [Suspect]
     Active Substance: ONDANSETRON
     Indication: PRODUCT USED FOR UNKNOWN INDICATION
     Dosage: 2 MG/ML, SOLUTION INJECTABLE
     Route: 042
     Dates: start: 20191219, end: 20191219
  19. PANTOPRAZOLE [Concomitant]
     Active Substance: PANTOPRAZOLE
  20. LYRICA [Concomitant]
     Active Substance: PREGABALIN

REACTIONS (2)
  - Drug level increased [Recovered/Resolved]
  - Renal tubular necrosis [Recovered/Resolved]

NARRATIVE: CASE EVENT DATE: 20200113
